FAERS Safety Report 5143405-6 (Version None)
Quarter: 2006Q4

REPORT INFORMATION
  Report Type: 
  Country: None (occurrence: None)
  Receive Date: 20061103
  Receipt Date: 20051206
  Transmission Date: 20070319
  Serious: Yes (Disabling)
  Sender: FDA-Public Use
  Company Number: 2005CG02046

PATIENT
  Age: 45 Year
  Sex: Male

DRUGS (2)
  1. NAROPEINE [Suspect]
     Indication: LOCAL ANAESTHESIA
     Route: 053
     Dates: start: 20051001, end: 20051001
  2. LAMICTAL [Suspect]
     Indication: EPILEPSY
     Dates: start: 20050601

REACTIONS (1)
  - PERIPHERAL SENSORY NEUROPATHY [None]
